FAERS Safety Report 10210775 (Version 1)
Quarter: 2014Q2

REPORT INFORMATION
  Report Type: Report from Study
  Country: FR (occurrence: FR)
  Receive Date: 20140602
  Receipt Date: 20140602
  Transmission Date: 20141212
  Serious: Yes (Other)
  Sender: FDA-Public Use
  Company Number: FR-JNJFOC-20140517576

PATIENT
  Age: 55 Year
  Sex: 0

DRUGS (16)
  1. SIMPONI [Suspect]
     Indication: PRODUCT USED FOR UNKNOWN INDICATION
     Route: 058
     Dates: start: 20140401
  2. PARACETAMOL [Concomitant]
     Route: 065
     Dates: start: 20140310
  3. OXYCONTIN [Concomitant]
     Route: 065
     Dates: start: 20131205
  4. OXYNORM [Concomitant]
     Route: 065
     Dates: start: 20131205
  5. INDOMETHACIN [Concomitant]
     Route: 065
     Dates: start: 20140322
  6. AMITRIPTYLINE [Concomitant]
     Route: 065
     Dates: start: 20140322
  7. SEROPLEX [Concomitant]
     Indication: ANXIETY
     Route: 065
     Dates: start: 201209
  8. TRANXENE [Concomitant]
     Indication: ANXIETY
     Route: 065
     Dates: start: 201209
  9. IMOVANE [Concomitant]
     Indication: ANXIETY
     Route: 065
     Dates: start: 201208
  10. PROGESTERONE [Concomitant]
     Indication: HORMONE REPLACEMENT THERAPY
     Route: 065
     Dates: start: 201208
  11. ESTREVA [Concomitant]
     Indication: HORMONE REPLACEMENT THERAPY
     Route: 065
     Dates: start: 201208
  12. CARTEOL [Concomitant]
     Indication: DRY EYE
     Route: 065
     Dates: start: 201209
  13. INEXIUM [Concomitant]
     Indication: PROPHYLAXIS
     Route: 065
     Dates: start: 20120322
  14. MOVICOL [Concomitant]
     Indication: CONSTIPATION
     Route: 065
     Dates: start: 20140322
  15. RECTOPANBILINE [Concomitant]
     Indication: CONSTIPATION
     Route: 065
     Dates: start: 20140322
  16. ACLASTA [Concomitant]
     Indication: OSTEOPOROSIS PROPHYLAXIS
     Route: 065
     Dates: start: 20140329, end: 20140329

REACTIONS (1)
  - Syncope [Not Recovered/Not Resolved]
